FAERS Safety Report 11129713 (Version 27)
Quarter: 2017Q4

REPORT INFORMATION
  Report Type: Report from Study
  Country: KR (occurrence: KR)
  Receive Date: 20150521
  Receipt Date: 20171211
  Transmission Date: 20180320
  Serious: Yes (Hospitalization, Other)
  Sender: FDA-Public Use
  Company Number: KR-BAYER-2014-151096

PATIENT
  Age: 30 Year
  Sex: Male

DRUGS (1)
  1. BETAFERON [Suspect]
     Active Substance: INTERFERON BETA-1B
     Indication: MULTIPLE SCLEROSIS
     Dosage: 1 ML, QOD
     Route: 058
     Dates: start: 20140620

REACTIONS (60)
  - Multiple sclerosis [None]
  - Amnesia [Not Recovered/Not Resolved]
  - Road traffic accident [None]
  - Seizure [None]
  - Syncope [Unknown]
  - Seizure [Unknown]
  - Seizure [Recovered/Resolved]
  - Seizure [Recovered/Resolved]
  - Peripheral swelling [Not Recovered/Not Resolved]
  - Road traffic accident [None]
  - Fatigue [None]
  - Vomiting [Not Recovered/Not Resolved]
  - Depression [None]
  - Dizziness [Not Recovered/Not Resolved]
  - Anxiety [None]
  - Social problem [None]
  - Seizure [Recovered/Resolved]
  - Varicose vein [Not Recovered/Not Resolved]
  - Amnesia [None]
  - Visual impairment [None]
  - Dizziness [Not Recovered/Not Resolved]
  - Seizure [Recovered/Resolved]
  - Nausea [Not Recovered/Not Resolved]
  - Fall [None]
  - Discomfort [None]
  - Feeling abnormal [Not Recovered/Not Resolved]
  - Disorientation [None]
  - Discomfort [None]
  - Headache [None]
  - Seizure [Recovering/Resolving]
  - Anger [Not Recovered/Not Resolved]
  - Syncope [None]
  - Ligament rupture [Not Recovered/Not Resolved]
  - Visual impairment [Not Recovered/Not Resolved]
  - Seizure [Not Recovered/Not Resolved]
  - Gait disturbance [None]
  - Seizure [Recovered/Resolved]
  - Seizure [Unknown]
  - Headache [Recovered/Resolved]
  - Depressed mood [None]
  - Frustration tolerance decreased [None]
  - Nausea [Recovered/Resolved]
  - Myalgia [None]
  - Nuclear magnetic resonance imaging abnormal [None]
  - Seizure [Recovered/Resolved]
  - Peripheral swelling [Recovered/Resolved with Sequelae]
  - Nasopharyngitis [Recovered/Resolved]
  - Dizziness [Not Recovered/Not Resolved]
  - Gait disturbance [Not Recovered/Not Resolved]
  - Seizure [Recovered/Resolved]
  - Seizure [None]
  - Optic nerve injury [Not Recovered/Not Resolved]
  - Seizure [Recovered/Resolved]
  - Seizure [Recovered/Resolved]
  - Seizure [Recovered/Resolved]
  - Seizure [Recovered/Resolved]
  - Syncope [None]
  - Oropharyngeal pain [Not Recovered/Not Resolved]
  - Vision blurred [None]
  - Muscle spasms [None]

NARRATIVE: CASE EVENT DATE: 2014
